FAERS Safety Report 24274654 (Version 3)
Quarter: 2024Q4

REPORT INFORMATION
  Report Type: Report from Study
  Country: NL (occurrence: NL)
  Receive Date: 20240902
  Receipt Date: 20241126
  Transmission Date: 20250114
  Serious: Yes (Other)
  Sender: ABBVIE
  Company Number: NL-ABBVIE-4756037

PATIENT
  Age: 80 Year
  Sex: Male

DRUGS (19)
  1. CARBIDOPA\LEVODOPA [Suspect]
     Active Substance: CARBIDOPA\LEVODOPA
     Indication: Parkinson^s disease
     Dosage: MD 7.5 ML; CD 4.2 ML/H; ED 1.8 ML,  REMAINS AT 16 HOURS
     Route: 050
     Dates: start: 20240321, end: 20240801
  2. CARBIDOPA\LEVODOPA [Suspect]
     Active Substance: CARBIDOPA\LEVODOPA
     Dosage: MD 7.5 ML; CD 4.2 ML/H; ED 1.8 ML, REMAINS AT 16 HOURS
     Route: 050
     Dates: start: 20240801, end: 20240826
  3. CARBIDOPA\LEVODOPA [Suspect]
     Active Substance: CARBIDOPA\LEVODOPA
     Dosage: MD 7.8 ML; CD 4.2 ML/H; ED 1.8 ML/REMAINS AT 16 HOURS
     Route: 050
  4. CARBIDOPA\LEVODOPA [Suspect]
     Active Substance: CARBIDOPA\LEVODOPA
     Dosage: MD 8.0 ML; CD 4.2 ML/H; ED 1.8 ML REMAINS AT 16 HOURS
     Route: 050
     Dates: start: 20230809, end: 20231123
  5. CARBIDOPA\LEVODOPA [Suspect]
     Active Substance: CARBIDOPA\LEVODOPA
     Dosage: MD 8.0 ML; CD 4.2 ML/H; ED 1.8 ML/REMAINS AT 16 HOURS
     Route: 050
     Dates: start: 20231207, end: 20231207
  6. CARBIDOPA\LEVODOPA [Suspect]
     Active Substance: CARBIDOPA\LEVODOPA
     Dosage: MD 8.0 ML; CD 4.2 ML/H; ED 1.8 ML/REMAINS AT 16 HOURS
     Route: 050
     Dates: start: 20231123, end: 20231207
  7. CARBIDOPA\LEVODOPA [Suspect]
     Active Substance: CARBIDOPA\LEVODOPA
     Dosage: REMAINS AT 16 HOURS
     Route: 050
     Dates: start: 20180205
  8. CARBIDOPA\LEVODOPA [Suspect]
     Active Substance: CARBIDOPA\LEVODOPA
     Route: 050
  9. CARBIDOPA\LEVODOPA [Suspect]
     Active Substance: CARBIDOPA\LEVODOPA
     Dosage: MD:  7.5 ML/REMAINS AT 16 HOURS
     Route: 050
     Dates: start: 20231207, end: 20240321
  10. CARBIDOPA\LEVODOPA [Suspect]
     Active Substance: CARBIDOPA\LEVODOPA
     Dosage: MD 7.5 ML; CD 4.2 ML/H; ED 1.8 ML, REMAINS AT 16 HOURS
     Route: 050
     Dates: start: 20240826
  11. CARBIDOPA\LEVODOPA [Suspect]
     Active Substance: CARBIDOPA\LEVODOPA
     Dosage: MD 7.5 ML; CD 4.2 ML/H; ED 1.8 ML
     Route: 050
     Dates: start: 20241120
  12. CARBIDOPA\LEVODOPA [Suspect]
     Active Substance: CARBIDOPA\LEVODOPA
     Dosage: MD 7.5 ML; CD 4.2 ML/H; ED 1.8 ML/REMAINS AT 16 HOURS
     Route: 050
  13. SINEMET [Concomitant]
     Active Substance: CARBIDOPA\LEVODOPA
     Indication: Parkinson^s disease
     Route: 048
     Dates: start: 201812
  14. Microlax [Concomitant]
     Indication: Product used for unknown indication
     Dates: start: 20200115
  15. Microlax [Concomitant]
     Indication: Product used for unknown indication
     Dosage: AFTER 3 DAYS OF NO BOWEL MOVEMENT
     Dates: start: 20200115
  16. MEBEVERINE [Concomitant]
     Active Substance: MEBEVERINE
     Indication: Product used for unknown indication
     Route: 048
     Dates: start: 202104
  17. MEBEVERINE [Concomitant]
     Active Substance: MEBEVERINE
     Indication: Product used for unknown indication
     Route: 048
     Dates: start: 202104
  18. MOVICOLON [Concomitant]
     Active Substance: POLYETHYLENE GLYCOL 3350\POTASSIUM CHLORIDE\SODIUM BICARBONATE\SODIUM CHLORIDE
     Indication: Bowel movement irregularity
  19. CLOZAPINE [Concomitant]
     Active Substance: CLOZAPINE
     Indication: Hallucination

REACTIONS (33)
  - Depressed level of consciousness [Not Recovered/Not Resolved]
  - Restlessness [Not Recovered/Not Resolved]
  - Urinary tract infection [Not Recovered/Not Resolved]
  - Dystonia [Not Recovered/Not Resolved]
  - Echopraxia [Not Recovered/Not Resolved]
  - Device issue [Not Recovered/Not Resolved]
  - Muscular weakness [Not Recovered/Not Resolved]
  - Tension [Not Recovered/Not Resolved]
  - Arthritis [Not Recovered/Not Resolved]
  - Weight decreased [Not Recovered/Not Resolved]
  - Hallucination [Not Recovered/Not Resolved]
  - Constipation [Not Recovered/Not Resolved]
  - Abnormal faeces [Not Recovered/Not Resolved]
  - Staring [Not Recovered/Not Resolved]
  - Disturbance in attention [Not Recovered/Not Resolved]
  - Loss of personal independence in daily activities [Not Recovered/Not Resolved]
  - Diarrhoea [Not Recovered/Not Resolved]
  - Abnormal dreams [Not Recovered/Not Resolved]
  - Device dislocation [Not Recovered/Not Resolved]
  - Somnolence [Not Recovered/Not Resolved]
  - Grip strength decreased [Not Recovered/Not Resolved]
  - Cognitive disorder [Not Recovered/Not Resolved]
  - Dyskinesia [Not Recovered/Not Resolved]
  - Memory impairment [Not Recovered/Not Resolved]
  - Sexually inappropriate behaviour [Not Recovered/Not Resolved]
  - Freezing phenomenon [Not Recovered/Not Resolved]
  - Hyperkinesia [Recovered/Resolved]
  - On and off phenomenon [Not Recovered/Not Resolved]
  - Muscle rigidity [Not Recovered/Not Resolved]
  - Fatigue [Not Recovered/Not Resolved]
  - Pyrexia [Recovered/Resolved]
  - Hypotension [Not Recovered/Not Resolved]
  - Device loosening [Not Recovered/Not Resolved]
